FAERS Safety Report 9848629 (Version 1)
Quarter: 2014Q1

REPORT INFORMATION
  Report Type: Spontaneous
  Country: US (occurrence: None)
  Receive Date: 20140124
  Receipt Date: 20140124
  Transmission Date: 20141002
  Serious: Yes (Other)
  Sender: FDA-Public Use
  Company Number: None

PATIENT
  Age: 74 Year
  Sex: Female
  Weight: 82.56 kg

DRUGS (1)
  1. NIFEDIPINE [Suspect]
     Indication: HYPERTENSION
     Route: 048
     Dates: start: 20090421

REACTIONS (5)
  - Blindness [None]
  - Dizziness [None]
  - Visual impairment [None]
  - Blood pressure increased [None]
  - Product substitution issue [None]
